FAERS Safety Report 23553516 (Version 1)
Quarter: 2024Q1

REPORT INFORMATION
  Report Type: Spontaneous
  Country: US (occurrence: None)
  Receive Date: 20240221
  Receipt Date: 20240221
  Transmission Date: 20240409
  Serious: Yes (Disabling, Other)
  Sender: FDA-Public Use
  Company Number: None

PATIENT
  Age: 84 Year
  Sex: Male
  Weight: 83.91 kg

DRUGS (6)
  1. AMLODIPINE BESYLATE [Suspect]
     Active Substance: AMLODIPINE BESYLATE
     Indication: Blood pressure abnormal
     Dosage: FREQUENCY : DAILY;?
     Route: 048
     Dates: start: 20240102, end: 20240104
  2. CARVEDILOL [Concomitant]
     Active Substance: CARVEDILOL
  3. LIPITOR [Concomitant]
     Active Substance: ATORVASTATIN CALCIUM
  4. FISH OIL [Concomitant]
     Active Substance: FISH OIL
  5. HAWTHORN BERRIES [Concomitant]
  6. GLUCOSAMINE [Concomitant]
     Active Substance: GLUCOSAMINE

REACTIONS (7)
  - Blood pressure increased [None]
  - Therapy change [None]
  - Dizziness [None]
  - Fall [None]
  - Micturition urgency [None]
  - Dysstasia [None]
  - Pain in extremity [None]

NARRATIVE: CASE EVENT DATE: 20231225
